FAERS Safety Report 7797618-5 (Version None)
Quarter: 2011Q4

REPORT INFORMATION
  Report Type: 
  Country: None (occurrence: None)
  Receive Date: 20111004
  Receipt Date: 20111004
  Transmission Date: 20120403
  Serious: Yes (Hospitalization)
  Sender: FDA-Public Use
  Company Number: None

PATIENT
  Sex: Female
  Weight: 44.4 kg

DRUGS (7)
  1. TAXOL [Suspect]
     Dosage: 250 MG
     Dates: end: 20110906
  2. BENICAR [Concomitant]
  3. METOPROLOL TARTRATE [Concomitant]
  4. JANUVIA [Concomitant]
  5. GLIMEPIRIDE [Concomitant]
  6. SIMVASTATIN [Concomitant]
  7. TOPOTECAN [Suspect]
     Dosage: 3.3 MG
     Dates: end: 20110908

REACTIONS (5)
  - URINARY TRACT INFECTION [None]
  - ANAEMIA [None]
  - FEBRILE NEUTROPENIA [None]
  - CATHETER CULTURE POSITIVE [None]
  - STAPHYLOCOCCAL INFECTION [None]
